FAERS Safety Report 6468925-3 (Version None)
Quarter: 2009Q4

REPORT INFORMATION
  Report Type: 
  Country: None (occurrence: None)
  Receive Date: 20091203
  Receipt Date: 20080206
  Transmission Date: 20100525
  Serious: Yes (Hospitalization)
  Sender: FDA-Public Use
  Company Number: US-ELI_LILLY_AND_COMPANY-USA050599344

PATIENT
  Sex: Male

DRUGS (6)
  1. CYMBALTA [Suspect]
     Indication: DIABETIC NEUROPATHY
     Dosage: 30 MG, DAILY (1/D)
     Dates: start: 20050525
  2. CYMBALTA [Suspect]
     Dosage: 60 MG, UNK
     Route: 048
  3. CYMBALTA [Suspect]
     Dosage: 30 MG, UNK
     Route: 048
  4. ZOCOR [Concomitant]
     Dosage: UNK, UNKNOWN
  5. HUMALOG [Concomitant]
     Indication: DIABETES MELLITUS
  6. LANTUS [Concomitant]
     Indication: DIABETES MELLITUS

REACTIONS (4)
  - ANAEMIA [None]
  - DRUG INEFFECTIVE [None]
  - INSOMNIA [None]
  - MUSCULAR WEAKNESS [None]
